FAERS Safety Report 9415472 (Version 1)
Quarter: 2013Q3

REPORT INFORMATION
  Report Type: Spontaneous
  Country: AU (occurrence: AU)
  Receive Date: 20130723
  Receipt Date: 20130723
  Transmission Date: 20140515
  Serious: Yes (Other)
  Sender: FDA-Public Use
  Company Number: AU-WATSON-2013-12632

PATIENT
  Age: 64 Year
  Sex: Female

DRUGS (7)
  1. DIGOXIN (UNKNOWN) [Suspect]
     Indication: CARDIOMYOPATHY
     Dosage: 1 MG, SINGLE
     Route: 042
  2. DIGOXIN (UNKNOWN) [Interacting]
     Dosage: 0.5 MG, SINGLE
     Route: 042
  3. AMIODARONE HYDROCHLORIDE (UNKNOWN) [Interacting]
     Indication: ATRIAL FIBRILLATION
     Dosage: UNK
     Route: 042
  4. ERYTHROMYCIN (WATSON LABORATORIES) [Interacting]
     Indication: SEPTIC SHOCK
     Dosage: 100 MG, SINGLE
     Route: 042
  5. NORADRENALINE                      /00127501/ [Concomitant]
     Indication: SEPTIC SHOCK
     Dosage: UNK
     Route: 065
  6. ADRENALINE                         /00003901/ [Concomitant]
     Indication: SEPTIC SHOCK
     Dosage: UNK
     Route: 065
  7. ESOMEPRAZOLE [Concomitant]
     Indication: LARGE INTESTINE PERFORATION
     Dosage: 40 MG, SINGLE
     Route: 065

REACTIONS (4)
  - Toxicity to various agents [Recovered/Resolved]
  - Nodal arrhythmia [Recovered/Resolved]
  - Hyperkalaemia [Recovered/Resolved]
  - Drug interaction [Recovered/Resolved]
